FAERS Safety Report 7572711-0 (Version None)
Quarter: 2011Q2

REPORT INFORMATION
  Report Type: 
  Country: None (occurrence: None)
  Receive Date: 20110620
  Receipt Date: 20110603
  Transmission Date: 20111010
  Serious: Yes (Hospitalization)
  Sender: FDA-Public Use
  Company Number: 2011MA006767

PATIENT
  Age: 25 Year

DRUGS (1)
  1. METOCLOPRAMIDE [Suspect]
     Indication: CONSTIPATION

REACTIONS (9)
  - TRANSAMINASES INCREASED [None]
  - ANAEMIA [None]
  - INAPPROPRIATE ANTIDIURETIC HORMONE SECRETION [None]
  - MEGACOLON [None]
  - DEMYELINATING POLYNEUROPATHY [None]
  - POSTERIOR REVERSIBLE ENCEPHALOPATHY SYNDROME [None]
  - DRUG INEFFECTIVE [None]
  - CONVULSION [None]
  - PORPHYRIA ACUTE [None]
